FAERS Safety Report 8787925 (Version 3)
Quarter: 2015Q1

REPORT INFORMATION
  Report Type: Report from Study
  Country: US (occurrence: US)
  Receive Date: 20120914
  Receipt Date: 20150220
  Transmission Date: 20150721
  Serious: Yes (Death)
  Sender: FDA-Public Use
  Company Number: US-ROCHE-1124686

PATIENT
  Sex: Female

DRUGS (15)
  1. TAXOL [Concomitant]
     Active Substance: PACLITAXEL
     Route: 065
  2. WARFARIN [Concomitant]
     Active Substance: WARFARIN
  3. VITAMIN C [Concomitant]
     Active Substance: ASCORBIC ACID
  4. DECADRON [Concomitant]
     Active Substance: DEXAMETHASONE
     Dosage: 20
     Route: 065
  5. TYLENOL [Concomitant]
     Active Substance: ACETAMINOPHEN
     Dosage: 100
     Route: 065
  6. LIPITOR [Concomitant]
     Active Substance: ATORVASTATIN CALCIUM
  7. COMPAZINE [Concomitant]
     Active Substance: PROCHLORPERAZINE MALEATE
  8. BENADRYL [Concomitant]
     Active Substance: DIPHENHYDRAMINE HYDROCHLORIDE
     Dosage: 50
     Route: 065
  9. ZANTAC [Concomitant]
     Active Substance: RANITIDINE HYDROCHLORIDE
     Dosage: 50
     Route: 065
  10. LOVENOX [Concomitant]
     Active Substance: ENOXAPARIN SODIUM
  11. ZOFRAN [Concomitant]
     Active Substance: ONDANSETRON HYDROCHLORIDE
  12. ALOXI [Concomitant]
     Active Substance: PALONOSETRON HYDROCHLORIDE
     Dosage: 0.25
     Route: 065
  13. AVASTIN [Suspect]
     Active Substance: BEVACIZUMAB
     Indication: BREAST CANCER
     Route: 042
     Dates: start: 20080825
  14. COUMADIN (UNITED STATES) [Concomitant]
  15. VITAMIN E [Concomitant]
     Active Substance: .ALPHA.-TOCOPHEROL

REACTIONS (10)
  - Pneumonia [Unknown]
  - Haematochezia [Unknown]
  - Anxiety [Unknown]
  - Pulmonary embolism [Unknown]
  - Death [Fatal]
  - Nausea [Unknown]
  - Dyspnoea [Unknown]
  - Lung consolidation [Unknown]
  - Neutropenia [Unknown]
  - Abdominal pain lower [Unknown]
